FAERS Safety Report 7265475-1 (Version None)
Quarter: 2011Q1

REPORT INFORMATION
  Report Type: 
  Country: None (occurrence: None)
  Receive Date: 20110131
  Receipt Date: 20110124
  Transmission Date: 20110831
  Serious: Yes (Other)
  Sender: FDA-Public Use
  Company Number: PHHY2010US84220

PATIENT
  Sex: Female

DRUGS (2)
  1. ANTIBIOTICS [Interacting]
     Dosage: UNK
  2. GILENYA [Suspect]
     Dosage: 0.5 MG, QD
     Route: 048
     Dates: start: 20101207

REACTIONS (4)
  - DRUG INTERACTION [None]
  - BLOOD PRESSURE DECREASED [None]
  - HEART RATE DECREASED [None]
  - INFECTION [None]
